FAERS Safety Report 4584732-0 (Version None)
Quarter: 2005Q1

REPORT INFORMATION
  Report Type: 
  Country: None (occurrence: None)
  Receive Date: 20050214
  Receipt Date: 20040913
  Transmission Date: 20050727
  Serious: Yes (Hospitalization)
  Sender: FDA-Public Use
  Company Number: 05-043

PATIENT
  Age: 65 Year
  Sex: Male

DRUGS (25)
  1. DEXAMETHASONE [Suspect]
     Indication: MULTIPLE MYELOMA
     Dosage: 40 MG DAY ORAL
     Route: 048
     Dates: start: 20011108, end: 20011111
  2. DEXAMETHASONE [Suspect]
     Indication: MULTIPLE MYELOMA
     Dosage: 40 MG DAY ORAL
     Route: 048
     Dates: start: 20011209, end: 20011212
  3. GENASENSE [Concomitant]
  4. VENLAFAXINE HCL [Concomitant]
  5. AMLODIPINE [Concomitant]
  6. TRIMETHOPRIM-SULFAMETHOXAZOLE [Concomitant]
  7. FAMCICLOVIR [Concomitant]
  8. AMIODARONE HCL [Concomitant]
  9. ATENOLOL [Concomitant]
  10. ISOSORBIDE MONONITRATE [Concomitant]
  11. EPOETIN ALFA [Concomitant]
  12. INSULIN [Concomitant]
  13. POTASSIUM CHLORIDE [Concomitant]
  14. FUROSEMIDE [Concomitant]
  15. PREDNISONE [Concomitant]
  16. PAMIDRONATE DISODIUM [Concomitant]
  17. NEUPOGEN [Concomitant]
  18. VANCOMYCIN [Concomitant]
  19. PANTOPRAZOLE [Concomitant]
  20. MELPHALAN AND PREDNISONE [Concomitant]
  21. MELPHALAN AND CYCLOPHOSPHAMIDE [Concomitant]
  22. VINCRISTINE [Concomitant]
  23. CYCLOPHOSPHAMIDE AND MELPHALAN [Concomitant]
  24. PREDNISONE [Concomitant]
  25. THALIDOMIDE [Concomitant]

REACTIONS (7)
  - BIOPSY BONE MARROW ABNORMAL [None]
  - CATHETER RELATED INFECTION [None]
  - DISEASE PROGRESSION [None]
  - PANCYTOPENIA [None]
  - PLASMA CELLS PRESENT [None]
  - STAPHYLOCOCCAL INFECTION [None]
  - URINARY TRACT INFECTION [None]
